FAERS Safety Report 16866570 (Version 1)
Quarter: 2019Q3

REPORT INFORMATION
  Report Type: Spontaneous
  Country: US (occurrence: US)
  Receive Date: 20190930
  Receipt Date: 20190930
  Transmission Date: 20191005
  Serious: No
  Sender: FDA-Public Use
  Company Number: US-ALLERGAN-1928792US

PATIENT
  Sex: Male

DRUGS (2)
  1. VRAYLAR [Suspect]
     Active Substance: CARIPRAZINE
     Indication: DEPRESSION
  2. VRAYLAR [Suspect]
     Active Substance: CARIPRAZINE
     Indication: ANXIETY
     Dosage: 1.25, ONCE A DAY
     Route: 065
     Dates: start: 20190708

REACTIONS (5)
  - Balance disorder [Unknown]
  - Dizziness [Unknown]
  - Somnolence [Unknown]
  - Incorrect dose administered [Unknown]
  - Gait disturbance [Unknown]
